FAERS Safety Report 11929939 (Version 2)
Quarter: 2016Q2

REPORT INFORMATION
  Report Type: Spontaneous
  Country: US (occurrence: US)
  Receive Date: 20160120
  Receipt Date: 20160408
  Transmission Date: 20160815
  Serious: Yes (Hospitalization, Other)
  Sender: FDA-Public Use
  Company Number: US-ELI_LILLY_AND_COMPANY-US201601005265

PATIENT
  Age: 65 Year
  Sex: Male
  Weight: 136.5 kg

DRUGS (17)
  1. AZITHROMYCIN ANHYDROUS. [Concomitant]
     Active Substance: AZITHROMYCIN ANHYDROUS
     Dosage: 500 MG, QD
     Route: 065
  2. AXIRON [Suspect]
     Active Substance: TESTOSTERONE
     Indication: ANDROGEN REPLACEMENT THERAPY
     Dosage: 60 MG, QD
     Route: 061
     Dates: start: 201311
  3. SERTRALINE HCL [Concomitant]
     Active Substance: SERTRALINE HYDROCHLORIDE
     Dosage: 200 MG, QD
     Route: 065
  4. GABAPENTIN. [Concomitant]
     Active Substance: GABAPENTIN
     Dosage: 800 MG, TID
     Route: 065
  5. PRAVASTATIN SODIUM. [Concomitant]
     Active Substance: PRAVASTATIN SODIUM
     Indication: BLOOD CHOLESTEROL
     Dosage: 10 MG, QD
     Route: 065
  6. AXIRON [Suspect]
     Active Substance: TESTOSTERONE
     Indication: BLOOD TESTOSTERONE DECREASED
  7. ANDRODERM [Suspect]
     Active Substance: TESTOSTERONE
     Indication: ANDROGEN REPLACEMENT THERAPY
     Dosage: 1 DF, QD
     Route: 062
     Dates: start: 200905, end: 200906
  8. CELECOXIB. [Concomitant]
     Active Substance: CELECOXIB
     Dosage: 200 MG, QD
     Route: 065
  9. HYDROXYZINE [Concomitant]
     Active Substance: HYDROXYZINE\HYDROXYZINE HYDROCHLORIDE
     Dosage: 50 MG, QD
     Route: 065
  10. SULINDAC. [Concomitant]
     Active Substance: SULINDAC
     Dosage: 200 MG, BID
     Route: 065
  11. TESTOSTERONE CYPIONATE. [Suspect]
     Active Substance: TESTOSTERONE CYPIONATE
     Indication: ANDROGEN REPLACEMENT THERAPY
     Dosage: UNK UNK, 2/M
     Route: 030
     Dates: start: 200910, end: 201102
  12. TRAMADOL HCL [Concomitant]
     Active Substance: TRAMADOL HYDROCHLORIDE
     Dosage: 50 MG, EVERY 6 HRS
     Route: 065
  13. TESTOSTERONE CYPIONATE. [Suspect]
     Active Substance: TESTOSTERONE CYPIONATE
     Indication: BLOOD TESTOSTERONE DECREASED
  14. VENLAFAXIN [Concomitant]
     Active Substance: VENLAFAXINE HYDROCHLORIDE
     Dosage: 75 MG, QD
     Route: 065
  15. ANDRODERM [Suspect]
     Active Substance: TESTOSTERONE
     Indication: BLOOD TESTOSTERONE DECREASED
  16. LISINOPRIL HCTZ [Concomitant]
     Active Substance: HYDROCHLOROTHIAZIDE\LISINOPRIL
     Dosage: 1 DF, QD
     Route: 065
  17. TRIPLE ANTIBIOTIC                  /00038301/ [Concomitant]
     Dosage: UNK, UNKNOWN
     Route: 065

REACTIONS (5)
  - Pulmonary embolism [Unknown]
  - Pneumonitis [Unknown]
  - Pulmonary embolism [Unknown]
  - Acute respiratory failure [Unknown]
  - Acute respiratory failure [Unknown]

NARRATIVE: CASE EVENT DATE: 20131119
